FAERS Safety Report 18071368 (Version 4)
Quarter: 2021Q2

REPORT INFORMATION
  Report Type: Spontaneous
  Country: NL (occurrence: NL)
  Receive Date: 20200727
  Receipt Date: 20210628
  Transmission Date: 20210717
  Serious: Yes (Other)
  Sender: FDA-Public Use
  Company Number: PHHY2019NL189987

PATIENT
  Age: 67 Year
  Sex: Female
  Weight: 80 kg

DRUGS (20)
  1. XGEVA [Suspect]
     Active Substance: DENOSUMAB
     Dosage: UNK
     Route: 058
  2. PEPPERMINT. [Concomitant]
     Active Substance: PEPPERMINT
     Indication: PRODUCT USED FOR UNKNOWN INDICATION
     Dosage: 182 MG
     Route: 065
  3. PALBOCICLIB [Suspect]
     Active Substance: PALBOCICLIB
     Indication: PRODUCT USED FOR UNKNOWN INDICATION
     Dosage: 125 MG, QD
     Route: 065
  4. OMEPRAZOLE. [Concomitant]
     Active Substance: OMEPRAZOLE
     Indication: PRODUCT USED FOR UNKNOWN INDICATION
     Dosage: 40 MG, QD
     Route: 048
     Dates: start: 20190508
  5. MOMETASON [Concomitant]
     Active Substance: MOMETASONE FUROATE
     Indication: PRODUCT USED FOR UNKNOWN INDICATION
     Dosage: 1 MG/G, QD
     Route: 065
  6. XGEVA [Suspect]
     Active Substance: DENOSUMAB
     Dosage: 120 MG, Q4W
     Route: 058
  7. CALCIUM [Concomitant]
     Active Substance: CALCIUM
     Indication: PRODUCT USED FOR UNKNOWN INDICATION
     Dosage: UNK (1.25G/440IE (500MG CA), QD
     Route: 065
  8. HARPAGOPHYTUM PROCUMBENS [Concomitant]
     Active Substance: HARPAGOPHYTUM PROCUMBENS ROOT\HERBALS
     Indication: PRODUCT USED FOR UNKNOWN INDICATION
     Dosage: 480 MG (480 MILLIGRAM, 2D1T)
     Route: 065
  9. FULVESTRANT. [Concomitant]
     Active Substance: FULVESTRANT
     Indication: PRODUCT USED FOR UNKNOWN INDICATION
     Dosage: UNK (50MG/ML)
     Route: 065
  10. DICLOFENAC [Concomitant]
     Active Substance: DICLOFENAC
     Indication: PRODUCT USED FOR UNKNOWN INDICATION
     Dosage: 23.2 MG/G(1D?GE)
     Route: 065
  11. XGEVA [Suspect]
     Active Substance: DENOSUMAB
     Indication: PROPHYLAXIS
     Dosage: 120 MILLIGRAM (1.7ML), Q4WK
     Route: 058
     Dates: start: 20190611
  12. DEVIL^S CLA [Concomitant]
     Indication: PRODUCT USED FOR UNKNOWN INDICATION
     Dosage: 960 MG, QD(480 MILLIGRAM, BID)
     Route: 065
  13. VASELINE CETOMACROGOL CREAM [Concomitant]
     Indication: PRODUCT USED FOR UNKNOWN INDICATION
     Dosage: UNK (2D?CR)
     Route: 065
  14. LETROZOLE. [Suspect]
     Active Substance: LETROZOLE
     Indication: BREAST CANCER METASTATIC
     Dosage: 2.5 MG, QD
     Route: 048
     Dates: start: 20190524
  15. XGEVA [Suspect]
     Active Substance: DENOSUMAB
     Dosage: UNK
     Route: 058
  16. OMEPRAZOLE. [Concomitant]
     Active Substance: OMEPRAZOLE
     Dosage: 20 MG, QD (1?2 CAPSULES)
     Route: 065
  17. TETANUS TOXOID ADSORBED (VACCINE) [Concomitant]
     Active Substance: CLOSTRIDIUM TETANI TOXOID ANTIGEN (FORMALDEHYDE INACTIVATED)
     Indication: PRODUCT USED FOR UNKNOWN INDICATION
     Dosage: UNK(80IE/ML FL 0.5ML UNK )
     Route: 065
  18. CALCIUM CARBONATE. [Concomitant]
     Active Substance: CALCIUM CARBONATE
     Indication: PRODUCT USED FOR UNKNOWN INDICATION
     Dosage: 1 UNK, QD(1.25G/440IE (500MG CA), QD)
     Route: 065
  19. DICLOFENAC/MISOPROSTOL [Concomitant]
     Active Substance: DICLOFENAC SODIUM\MISOPROSTOL
     Indication: PRODUCT USED FOR UNKNOWN INDICATION
     Dosage: UNK UNK, BID(50MG/200UG, BID)
     Route: 065
  20. CLOBETASOL [Concomitant]
     Active Substance: CLOBETASOL
     Indication: PRODUCT USED FOR UNKNOWN INDICATION
     Dosage: 0.5 MG/G, BID
     Route: 065

REACTIONS (17)
  - Arthralgia [Not Recovered/Not Resolved]
  - Skin haemorrhage [Unknown]
  - Psoriasis [Recovered/Resolved]
  - Eczema [Unknown]
  - White blood cell count decreased [Not Recovered/Not Resolved]
  - Urticaria [Recovered/Resolved]
  - Musculoskeletal discomfort [Unknown]
  - Metastases to bone [Unknown]
  - Pyrexia [Unknown]
  - Rash erythematous [Unknown]
  - Oral mucosal erythema [Unknown]
  - Contusion [Not Recovered/Not Resolved]
  - Chills [Unknown]
  - Fall [Unknown]
  - Skin abrasion [Unknown]
  - Back pain [Not Recovered/Not Resolved]
  - Nausea [Unknown]

NARRATIVE: CASE EVENT DATE: 2019
